FAERS Safety Report 15002084 (Version 1)
Quarter: 2018Q2

REPORT INFORMATION
  Report Type: Spontaneous
  Country: US (occurrence: US)
  Receive Date: 20180327
  Receipt Date: 20180327
  Transmission Date: 20180711
  Serious: Yes (Other)
  Sender: FDA-Public Use
  Company Number: None

PATIENT
  Age: 30 Year
  Sex: Female

DRUGS (1)
  1. COMPOUNDED TESTOSTERONE PELLET [Suspect]
     Active Substance: TESTOSTERONE
     Dosage: IMPLANTED  SUBCUTANEOUSLY
     Route: 058
     Dates: start: 20160620

REACTIONS (2)
  - Implant site abscess [None]
  - Expulsion of medication [None]

NARRATIVE: CASE EVENT DATE: 20160711
